FAERS Safety Report 22949032 (Version 5)
Quarter: 2024Q3

REPORT INFORMATION
  Report Type: Report from Study
  Country: CA (occurrence: CA)
  Receive Date: 20230915
  Receipt Date: 20240821
  Transmission Date: 20241017
  Serious: Yes (Hospitalization, Other)
  Sender: TAKEDA
  Company Number: CA-TAKEDA-2021TUS068356

PATIENT
  Age: 47 Year
  Sex: Male

DRUGS (9)
  1. VEDOLIZUMAB [Suspect]
     Active Substance: VEDOLIZUMAB
     Indication: Colitis ulcerative
     Dosage: 300 MILLIGRAM
     Route: 042
     Dates: start: 20210526
  2. VEDOLIZUMAB [Suspect]
     Active Substance: VEDOLIZUMAB
     Dosage: 300 MILLIGRAM
     Route: 042
  3. VEDOLIZUMAB [Suspect]
     Active Substance: VEDOLIZUMAB
     Dosage: 300 MILLIGRAM
     Route: 042
  4. VEDOLIZUMAB [Suspect]
     Active Substance: VEDOLIZUMAB
     Dosage: 300 MILLIGRAM
     Route: 042
  5. VEDOLIZUMAB [Suspect]
     Active Substance: VEDOLIZUMAB
     Dosage: 300 MILLIGRAM
     Route: 042
  6. VEDOLIZUMAB [Suspect]
     Active Substance: VEDOLIZUMAB
     Dosage: 300 MILLIGRAM
     Route: 042
  7. VEDOLIZUMAB [Suspect]
     Active Substance: VEDOLIZUMAB
     Dosage: 300 MILLIGRAM
     Route: 042
  8. MESALAMINE [Concomitant]
     Active Substance: MESALAMINE
     Dosage: 4.8 GRAM, QD
     Route: 048
     Dates: start: 20190402
  9. PREDNISONE [Concomitant]
     Active Substance: PREDNISONE
     Dosage: UNK UNK, QD
     Route: 048
     Dates: start: 20210423

REACTIONS (28)
  - Dehydration [Not Recovered/Not Resolved]
  - Colitis ulcerative [Not Recovered/Not Resolved]
  - Weight decreased [Unknown]
  - Fatigue [Unknown]
  - Drug ineffective [Not Recovered/Not Resolved]
  - Diarrhoea [Not Recovered/Not Resolved]
  - Rash macular [Unknown]
  - Muscle atrophy [Unknown]
  - Secretion discharge [Unknown]
  - Body temperature increased [Unknown]
  - Muscle fatigue [Unknown]
  - Generalised oedema [Unknown]
  - Productive cough [Unknown]
  - Malaise [Unknown]
  - Mobility decreased [Unknown]
  - COVID-19 [Unknown]
  - Loss of personal independence in daily activities [Not Recovered/Not Resolved]
  - Abdominal pain [Unknown]
  - Chest pain [Unknown]
  - Decreased appetite [Unknown]
  - Erythema [Unknown]
  - Dyspepsia [Unknown]
  - Flatulence [Unknown]
  - Abdominal distension [Unknown]
  - Nasopharyngitis [Unknown]
  - Cough [Unknown]
  - Bronchitis [Recovered/Resolved]
  - Pruritus [Unknown]

NARRATIVE: CASE EVENT DATE: 20211027
